FAERS Safety Report 24343009 (Version 1)
Quarter: 2024Q3

REPORT INFORMATION
  Report Type: Spontaneous
  Country: US (occurrence: US)
  Receive Date: 20240920
  Receipt Date: 20240920
  Transmission Date: 20241017
  Serious: No
  Sender: MERCK
  Company Number: US-009507513-2409USA006006

PATIENT
  Sex: Male

DRUGS (3)
  1. TRUSOPT [Suspect]
     Active Substance: DORZOLAMIDE HYDROCHLORIDE
     Indication: Glaucoma
     Dosage: THREE TIMES A DAY IN BOTH EYES (OU)
  2. TRUSOPT [Suspect]
     Active Substance: DORZOLAMIDE HYDROCHLORIDE
     Dosage: A DROP REGIMEN OF DORZOLAMIDE BID
  3. BEVACIZUMAB [Concomitant]
     Active Substance: BEVACIZUMAB
     Indication: Retinopathy of prematurity
     Dosage: AT 42 WEEKS PMA, BILATERALLY 0.625 MG/0.025ML BEVACIZUMAB INJECTED 1.5 MM BEHIND THE LIMBUS TEMPORAL

REACTIONS (1)
  - Inappropriate schedule of product administration [Unknown]
